FAERS Safety Report 7153181-3 (Version None)
Quarter: 2010Q4

REPORT INFORMATION
  Report Type: 
  Country: None (occurrence: None)
  Receive Date: 20101213
  Receipt Date: 20101130
  Transmission Date: 20110411
  Serious: No
  Sender: FDA-Public Use
  Company Number: GR-ELI_LILLY_AND_COMPANY-GR201012000971

PATIENT
  Age: 40 Year
  Sex: Male

DRUGS (1)
  1. CIALIS [Suspect]
     Indication: PROSTATITIS
     Dosage: 10 MG,
     Route: 065
     Dates: start: 20101127, end: 20101127

REACTIONS (4)
  - BACK PAIN [None]
  - DIARRHOEA [None]
  - OFF LABEL USE [None]
  - PHOTOPSIA [None]
